FAERS Safety Report 20807668 (Version 1)
Quarter: 2022Q2

REPORT INFORMATION
  Report Type: Spontaneous
  Country: US (occurrence: US)
  Receive Date: 20220510
  Receipt Date: 20220510
  Transmission Date: 20220721
  Serious: No
  Sender: FDA-Public Use
  Company Number: US-BRISTOL-MYERS SQUIBB COMPANY-2022-034999

PATIENT
  Age: 75 Year
  Sex: Female

DRUGS (1)
  1. REVLIMID [Suspect]
     Active Substance: LENALIDOMIDE
     Indication: Plasma cell myeloma
     Dosage: 1-14 OF EACH 21 DAY CYCLE
     Route: 048
     Dates: start: 20211117

REACTIONS (3)
  - Palpitations [Unknown]
  - Gait disturbance [Unknown]
  - Dizziness [Unknown]
